FAERS Safety Report 8891843 (Version 1)
Quarter: 2012Q4

REPORT INFORMATION
  Report Type: 
  Country: US (occurrence: US)
  Receive Date: 20121107
  Receipt Date: 20121107
  Transmission Date: 20130627
  Serious: No
  Sender: FDA-Public Use
  Company Number: US-AMGEN-USASP2011055868

PATIENT
  Sex: Male

DRUGS (2)
  1. ENBREL [Suspect]
     Indication: RHEUMATOID ARTHRITIS
     Dosage: 50 mg, qwk
     Dates: start: 201012, end: 20110826
  2. HUMIRA [Concomitant]

REACTIONS (2)
  - Musculoskeletal pain [Not Recovered/Not Resolved]
  - Drug ineffective [Not Recovered/Not Resolved]
